FAERS Safety Report 20087147 (Version 1)
Quarter: 2021Q4

REPORT INFORMATION
  Report Type: Spontaneous
  Country: DE (occurrence: DE)
  Receive Date: 20211118
  Receipt Date: 20211118
  Transmission Date: 20220303
  Serious: Yes (Other)
  Sender: FDA-Public Use
  Company Number: DE-EMBRYOTOX-202002937

PATIENT
  Age: 1 Day
  Sex: Female
  Weight: 2.4 kg

DRUGS (5)
  1. ESCITALOPRAM [Suspect]
     Active Substance: ESCITALOPRAM OXALATE
     Indication: Anxiety disorder
     Dosage: 10 MILLIGRAM, QD, 10 [MG/D ]
     Route: 064
     Dates: start: 20200111, end: 20201021
  2. METOPROLOL [Suspect]
     Active Substance: METOPROLOL
     Indication: Tachycardia
     Dosage: 95 MILLIGRAM, QD, 95 [MG/D ]
     Route: 064
     Dates: start: 20200111, end: 20201021
  3. METOPROLOL [Suspect]
     Active Substance: METOPROLOL
     Indication: Hypertension
  4. BUPRENORPHINE [Suspect]
     Active Substance: BUPRENORPHINE
     Indication: Drug dependence
     Dosage: 8 MILLIGRAM, QD, 8 [MG/D ]
     Route: 064
     Dates: start: 20200111, end: 20201021
  5. IBUPROFEN [Concomitant]
     Active Substance: IBUPROFEN
     Indication: Headache
     Dosage: 400 [MG/D (BEI BEDARF) ]
     Route: 064

REACTIONS (4)
  - Sepsis neonatal [Recovered/Resolved]
  - Small for dates baby [Unknown]
  - Drug withdrawal syndrome neonatal [Recovered/Resolved]
  - Foetal exposure during pregnancy [Unknown]

NARRATIVE: CASE EVENT DATE: 20201021
